FAERS Safety Report 7369857-9 (Version None)
Quarter: 2011Q1

REPORT INFORMATION
  Report Type: 
  Country: None (occurrence: None)
  Receive Date: 20110323
  Receipt Date: 20110302
  Transmission Date: 20110831
  Serious: Yes (Other)
  Sender: FDA-Public Use
  Company Number: US-BAYER-201036233NA

PATIENT
  Sex: Female
  Weight: 49.887 kg

DRUGS (7)
  1. WELCHOL [Concomitant]
     Dosage: 625 MG, UNK
     Route: 048
     Dates: start: 20090504
  2. ALPRAZOLAM [Concomitant]
     Dosage: 0.5 MG, UNK
     Route: 048
     Dates: start: 20080625, end: 20081213
  3. YASMIN [Suspect]
     Indication: CONTRACEPTION
     Route: 048
     Dates: start: 20080301, end: 20080801
  4. HYDROCODONE BITARTRATE AND ACETAMINOPHEN [Concomitant]
     Route: 048
  5. OCELLA [Suspect]
     Indication: CONTRACEPTION
     Route: 048
     Dates: start: 20080901, end: 20090701
  6. CIPROFLOXACIN [Concomitant]
     Dosage: UNK
     Route: 048
  7. DENAVIR [Concomitant]
     Dosage: 1 %, UNK
     Route: 061

REACTIONS (2)
  - CHOLECYSTITIS CHRONIC [None]
  - CHOLELITHIASIS [None]
